FAERS Safety Report 13535921 (Version 2)
Quarter: 2017Q2

REPORT INFORMATION
  Report Type: Spontaneous
  Country: GR (occurrence: GR)
  Receive Date: 20170511
  Receipt Date: 20170523
  Transmission Date: 20170830
  Serious: Yes (Life-Threatening, Hospitalization)
  Sender: FDA-Public Use
  Company Number: GR-EMD SERONO-8156106

PATIENT
  Age: 23 Year
  Sex: Female
  Weight: 46 kg

DRUGS (2)
  1. REBIF [Suspect]
     Active Substance: INTERFERON BETA-1A
     Indication: MULTIPLE SCLEROSIS
     Route: 058
     Dates: start: 200903
  2. REBIF [Suspect]
     Active Substance: INTERFERON BETA-1A
     Route: 058
     Dates: end: 20170422

REACTIONS (5)
  - Malignant hypertension [Recovering/Resolving]
  - Haemolytic uraemic syndrome [Not Recovered/Not Resolved]
  - Acute pulmonary oedema [Unknown]
  - Thrombotic microangiopathy [Recovering/Resolving]
  - Respiratory distress [Unknown]

NARRATIVE: CASE EVENT DATE: 20170422
